FAERS Safety Report 10531114 (Version 1)
Quarter: 2014Q4

REPORT INFORMATION
  Report Type: Spontaneous
  Country: US (occurrence: US)
  Receive Date: 20141021
  Receipt Date: 20141021
  Transmission Date: 20150529
  Serious: No
  Sender: FDA-Public Use
  Company Number: US-GLAXOSMITHKLINE-US2014006415

PATIENT
  Age: 52 Year
  Sex: Male
  Weight: 89.8 kg

DRUGS (2)
  1. NICOTINE TRANSDERMAL PATCH [Suspect]
     Active Substance: NICOTINE
     Indication: PRODUCT USED FOR UNKNOWN INDICATION
     Route: 065
  2. NICOTROL [Suspect]
     Active Substance: NICOTINE
     Indication: PRODUCT USED FOR UNKNOWN INDICATION
     Dosage: DOSAGE FORM: INHALATION
     Route: 065
     Dates: start: 20140913

REACTIONS (4)
  - Wrong technique in drug usage process [Unknown]
  - Muscle twitching [Unknown]
  - Ageusia [Unknown]
  - Product label confusion [Unknown]

NARRATIVE: CASE EVENT DATE: 201409
